FAERS Safety Report 8305734-4 (Version None)
Quarter: 2012Q2

REPORT INFORMATION
  Report Type: 
  Country: None (occurrence: None)
  Receive Date: 20120423
  Receipt Date: 20120413
  Transmission Date: 20120825
  Serious: Yes (Death, Hospitalization, Other)
  Sender: FDA-Public Use
  Company Number: AU-MUTUAL PHARMACEUTICAL COMPANY, INC.-CLHC20120028

PATIENT
  Age: 65 Year
  Sex: Male

DRUGS (4)
  1. LEVOTHYROXINE SODIUM [Concomitant]
     Indication: HYPOTHYROIDISM
     Route: 065
  2. NEBULISED SALBUTAMOL/IPRATROPIUM [Concomitant]
     Indication: ASTHMA
  3. COLCHICINE 0.5 MG [Suspect]
     Indication: GOUT
     Route: 048
  4. COLCHICINE 0.5 MG [Suspect]
     Route: 048

REACTIONS (17)
  - DEPRESSED LEVEL OF CONSCIOUSNESS [None]
  - DYSSTASIA [None]
  - TOXICITY TO VARIOUS AGENTS [None]
  - SEPSIS [None]
  - SEPTIC SHOCK [None]
  - HYPOVOLAEMIC SHOCK [None]
  - MULTI-ORGAN FAILURE [None]
  - BONE MARROW FAILURE [None]
  - IMMUNOSUPPRESSION [None]
  - DIARRHOEA [None]
  - ABDOMINAL DISCOMFORT [None]
  - ELECTROLYTE IMBALANCE [None]
  - PNEUMONIA [None]
  - ELECTROCARDIOGRAM T WAVE INVERSION [None]
  - HYPOPHAGIA [None]
  - BLOOD CREATINE PHOSPHOKINASE INCREASED [None]
  - TROPONIN T INCREASED [None]
